FAERS Safety Report 9500888 (Version 2)
Quarter: 2013Q4

REPORT INFORMATION
  Report Type: Spontaneous
  Country: JP (occurrence: JP)
  Receive Date: 20130905
  Receipt Date: 20131029
  Transmission Date: 20140711
  Serious: Yes (Other)
  Sender: FDA-Public Use
  Company Number: JP-EISAI INC-E7389-04172-SPO-JP

PATIENT
  Age: 53 Year
  Sex: Female

DRUGS (5)
  1. HALAVEN [Suspect]
     Indication: BREAST CANCER RECURRENT
     Dosage: 1.6 MG
     Route: 041
     Dates: start: 20130402, end: 20130402
  2. HALAVEN [Suspect]
     Dosage: 1.2 MG
     Route: 041
     Dates: start: 20130422, end: 20130617
  3. HALAVEN [Suspect]
     Dosage: 1.0 MG
     Route: 041
     Dates: start: 20130708, end: 20130708
  4. ADONA [Concomitant]
     Indication: HAEMORRHAGE
  5. TRANSAMIN [Concomitant]
     Indication: HAEMORRHAGE

REACTIONS (7)
  - Osteonecrosis [Not Recovered/Not Resolved]
  - Vertigo [Recovered/Resolved]
  - Chest discomfort [Unknown]
  - Oropharyngeal pain [Recovered/Resolved]
  - Nausea [Unknown]
  - Neutropenia [Recovered/Resolved]
  - Local swelling [Unknown]
